FAERS Safety Report 7823835-1 (Version None)
Quarter: 2011Q4

REPORT INFORMATION
  Report Type: 
  Country: None (occurrence: None)
  Receive Date: 20111019
  Receipt Date: 20111005
  Transmission Date: 20120403
  Serious: No
  Sender: FDA-Public Use
  Company Number: US-B.I. PHARMACEUTICALS,INC./RIDGEFIELD-2011-BP-19874BP

PATIENT
  Sex: Male
  Weight: 71.21 kg

DRUGS (10)
  1. CLARITIN [Concomitant]
     Indication: SEASONAL ALLERGY
     Dates: start: 20110101
  2. QVAR 40 [Concomitant]
     Dosage: 2 PUF
  3. VITAMIN B COMPLEX CAP [Concomitant]
     Indication: ROUTINE HEALTH MAINTENANCE
     Dates: start: 20110101
  4. FLECAINIDE ACETATE [Concomitant]
     Indication: ATRIAL FIBRILLATION
     Dates: start: 20050101
  5. COMBIVENT [Concomitant]
     Indication: CHRONIC OBSTRUCTIVE PULMONARY DISEASE
     Dates: start: 19950101
  6. MUCINEX [Concomitant]
     Indication: SEASONAL ALLERGY
     Dates: start: 20110101
  7. COUMADIN [Concomitant]
     Indication: ATRIAL FIBRILLATION
     Dates: start: 20050101
  8. SPIRIVA [Suspect]
     Indication: CHRONIC OBSTRUCTIVE PULMONARY DISEASE
     Dosage: 18 MCG
     Route: 055
     Dates: start: 20110812
  9. AMLODIPINE [Concomitant]
     Indication: HYPERTENSION
     Dates: start: 20010101
  10. SIMVASTATIN [Concomitant]
     Indication: BLOOD CHOLESTEROL INCREASED
     Dates: start: 20010101

REACTIONS (4)
  - DRUG INEFFECTIVE [None]
  - EMOTIONAL DISORDER [None]
  - DYSPNOEA [None]
  - CHEST DISCOMFORT [None]
